FAERS Safety Report 8866691 (Version 1)
Quarter: 2012Q4

REPORT INFORMATION
  Report Type: 
  Country: US (occurrence: US)
  Receive Date: 20121025
  Receipt Date: 20121025
  Transmission Date: 20130627
  Serious: No
  Sender: FDA-Public Use
  Company Number: US-AMGEN-USASP2012013016

PATIENT
  Age: 52 Year
  Sex: Male

DRUGS (9)
  1. ENBREL [Suspect]
     Indication: RHEUMATOID ARTHRITIS
     Dosage: 50 mg, qwk
     Route: 058
     Dates: start: 20090225
  2. XANAX [Concomitant]
     Dosage: 0.5 mg, UNK
  3. SERTRALINE [Concomitant]
     Dosage: 25 mg, UNK
  4. AMLODIPINE [Concomitant]
     Dosage: 2.5 mg, UNK
  5. METHOTREXATE [Concomitant]
     Dosage: 2.5 mg, UNK
  6. METFORMIN [Concomitant]
     Dosage: 500 mg, UNK
  7. FOLIC ACID [Concomitant]
     Dosage: 1 mg, UNK
  8. HYDROXYZINE HCL [Concomitant]
     Dosage: 10 mg, UNK
  9. BYETTA [Concomitant]
     Dosage: 5 mug, UNK

REACTIONS (2)
  - Injection site reaction [Unknown]
  - Injection site pain [Unknown]
